FAERS Safety Report 6814849-9 (Version None)
Quarter: 2010Q3

REPORT INFORMATION
  Report Type: 
  Country: None (occurrence: None)
  Receive Date: 20100702
  Receipt Date: 20100624
  Transmission Date: 20110219
  Serious: Yes (Other)
  Sender: FDA-Public Use
  Company Number: B0661681A

PATIENT
  Age: 70 Year
  Sex: Male

DRUGS (7)
  1. ZOVIRAX [Suspect]
     Route: 031
     Dates: start: 20080706, end: 20100301
  2. ZOVIRAX [Concomitant]
     Dosage: 1000MG PER DAY
     Route: 048
     Dates: start: 20090201
  3. CARTEOLOL HYDROCHLORIDE [Concomitant]
  4. XALATAN [Concomitant]
     Route: 031
  5. ISOSORBIDE DINITRATE [Concomitant]
     Dosage: 2IUAX PER DAY
     Route: 048
  6. DOXAZOSIN MESILATE [Concomitant]
     Dosage: 2MG PER DAY
     Route: 048
  7. CRESTOR [Concomitant]
     Indication: HYPERTENSION
     Route: 048

REACTIONS (2)
  - CATARACT [None]
  - VISUAL ACUITY REDUCED [None]
